FAERS Safety Report 8240351-6 (Version None)
Quarter: 2012Q1

REPORT INFORMATION
  Report Type: 
  Country: None (occurrence: None)
  Receive Date: 20120328
  Receipt Date: 20120321
  Transmission Date: 20120608
  Serious: Yes (Death, Other)
  Sender: FDA-Public Use
  Company Number: RU-BRISTOL-MYERS SQUIBB COMPANY-16467359

PATIENT
  Age: 34 Year
  Sex: Female

DRUGS (5)
  1. CARMUSTINE [Suspect]
     Route: 042
  2. ETOPOSIDE [Suspect]
  3. ALKERAN [Suspect]
  4. RITUXIMAB [Suspect]
     Route: 042
  5. DEXAMETHASONE [Suspect]
     Route: 042

REACTIONS (5)
  - GASTRIC HAEMORRHAGE [None]
  - DEATH [None]
  - HYPOVOLAEMIC SHOCK [None]
  - EPISTAXIS [None]
  - GRANULOCYTOPENIA [None]
